FAERS Safety Report 12397437 (Version 1)
Quarter: 2016Q2

REPORT INFORMATION
  Report Type: Report from Study
  Country: RO (occurrence: RO)
  Receive Date: 20160524
  Receipt Date: 20160524
  Transmission Date: 20160815
  Serious: Yes (Other)
  Sender: FDA-Public Use
  Company Number: RO-GLAXOSMITHKLINE-RO2016GSK070683

PATIENT
  Age: 26 Year
  Sex: Male

DRUGS (4)
  1. LAMIVUDINE. [Suspect]
     Active Substance: LAMIVUDINE
     Indication: HIV INFECTION
  2. VIDEX [Suspect]
     Active Substance: DIDANOSINE
     Indication: HIV INFECTION
  3. FOSAMPRENAVIR [Suspect]
     Active Substance: FOSAMPRENAVIR
     Indication: HIV INFECTION
  4. NORVIR [Suspect]
     Active Substance: RITONAVIR
     Indication: HIV INFECTION

REACTIONS (2)
  - Lipodystrophy acquired [Unknown]
  - Virologic failure [Unknown]
